FAERS Safety Report 4939974-9 (Version None)
Quarter: 2006Q1

REPORT INFORMATION
  Report Type: 
  Country: None (occurrence: None)
  Receive Date: 20060307
  Receipt Date: 20060222
  Transmission Date: 20060701
  Serious: Yes (Hospitalization)
  Sender: FDA-Public Use
  Company Number: 2005BI008667

PATIENT
  Age: 54 Year
  Sex: Female

DRUGS (6)
  1. AVONEX [Suspect]
     Indication: MULTIPLE SCLEROSIS
     Dosage: 30 UG;QW;IM
     Route: 030
     Dates: start: 20030301, end: 20050201
  2. ZOLOFT [Concomitant]
  3. VITAMIN B-12 [Concomitant]
  4. PROVIGIL [Concomitant]
  5. NEURONTIN [Concomitant]
  6. RED YEAST RICE [Concomitant]

REACTIONS (8)
  - ABDOMINAL PAIN UPPER [None]
  - COLITIS [None]
  - CROHN'S DISEASE [None]
  - HEPATIC FUNCTION ABNORMAL [None]
  - PAIN [None]
  - VOMITING [None]
  - WEIGHT DECREASED [None]
  - WHITE BLOOD CELL COUNT INCREASED [None]
